FAERS Safety Report 22638248 (Version 1)
Quarter: 2023Q2

REPORT INFORMATION
  Report Type: Spontaneous
  Country: AU (occurrence: AU)
  Receive Date: 20230626
  Receipt Date: 20230626
  Transmission Date: 20230722
  Serious: Yes (Other)
  Sender: FDA-Public Use
  Company Number: AU-002147023-NVSC2023AU142633

PATIENT
  Age: 5 Decade
  Sex: Female

DRUGS (1)
  1. OLANZAPINE [Suspect]
     Active Substance: OLANZAPINE
     Indication: Korsakoff^s syndrome
     Dosage: 15 MG, QD
     Route: 048

REACTIONS (2)
  - Hyperglycaemia [Unknown]
  - Product use in unapproved indication [Unknown]
